FAERS Safety Report 24082365 (Version 2)
Quarter: 2024Q3

REPORT INFORMATION
  Report Type: Spontaneous
  Country: BR (occurrence: BR)
  Receive Date: 20240712
  Receipt Date: 20240726
  Transmission Date: 20241017
  Serious: Yes (Other)
  Sender: RANBAXY
  Company Number: BR-SUN PHARMACEUTICAL INDUSTRIES LTD-2024R1-456244

PATIENT
  Age: 66 Year
  Sex: Female

DRUGS (6)
  1. GEMCITABINE [Suspect]
     Active Substance: GEMCITABINE
     Indication: Interstitial lung disease
     Dosage: UNK
     Route: 065
  2. GEMCITABINE [Suspect]
     Active Substance: GEMCITABINE
     Indication: Connective tissue disorder
  3. GEMCITABINE [Suspect]
     Active Substance: GEMCITABINE
     Indication: Pancreaticobiliary carcinoma
  4. PACLITAXEL [Suspect]
     Active Substance: PACLITAXEL
     Indication: Interstitial lung disease
     Dosage: UNK
     Route: 065
  5. PACLITAXEL [Suspect]
     Active Substance: PACLITAXEL
     Indication: Connective tissue disorder
  6. PACLITAXEL [Suspect]
     Active Substance: PACLITAXEL
     Indication: Pancreaticobiliary carcinoma

REACTIONS (3)
  - Condition aggravated [Unknown]
  - Drug resistance [Unknown]
  - Drug ineffective [Unknown]
